FAERS Safety Report 18642246 (Version 1)
Quarter: 2020Q4

REPORT INFORMATION
  Report Type: Spontaneous
  Country: US (occurrence: US)
  Receive Date: 20201218
  Receipt Date: 20201218
  Transmission Date: 20210114
  Serious: Yes (Other)
  Sender: FDA-Public Use
  Company Number: None

PATIENT
  Age: 42 Year
  Sex: Female

DRUGS (5)
  1. LEUCOVORIN. [Concomitant]
     Active Substance: LEUCOVORIN
  2. APREPITANT. [Concomitant]
     Active Substance: APREPITANT
  3. NEULASTA [Concomitant]
     Active Substance: PEGFILGRASTIM
  4. FLOUROURACIL [Concomitant]
     Active Substance: FLUOROURACIL
  5. OXALIPLATIN 100MG/20ML VIAL TEVA [Suspect]
     Active Substance: OXALIPLATIN
     Indication: COLON CANCER
     Route: 042

REACTIONS (1)
  - Cerebrovascular accident [None]
